FAERS Safety Report 15436461 (Version 3)
Quarter: 2018Q4

REPORT INFORMATION
  Report Type: Spontaneous
  Country: US (occurrence: US)
  Receive Date: 20180927
  Receipt Date: 20181113
  Transmission Date: 20190204
  Serious: No
  Sender: FDA-Public Use
  Company Number: US-PFIZER INC-2018388742

PATIENT
  Age: 69 Year
  Sex: Female
  Weight: 109 kg

DRUGS (2)
  1. LETROZOLE. [Concomitant]
     Active Substance: LETROZOLE
     Dosage: UNK
     Dates: start: 20180914
  2. IBRANCE [Suspect]
     Active Substance: PALBOCICLIB
     Indication: BREAST CANCER FEMALE
     Dosage: 125 MG, CYCLIC (D1-21 EVERY [Q] 28 DAYS)
     Route: 048
     Dates: start: 20180914

REACTIONS (6)
  - Arthralgia [Unknown]
  - Back pain [Unknown]
  - Fatigue [Recovering/Resolving]
  - Epistaxis [Recovered/Resolved]
  - White blood cell count decreased [Unknown]
  - Nasal disorder [Unknown]
